FAERS Safety Report 5060510-3 (Version None)
Quarter: 2006Q3

REPORT INFORMATION
  Report Type: 
  Country: None (occurrence: None)
  Receive Date: 20060725
  Receipt Date: 20060523
  Transmission Date: 20061208
  Serious: No
  Sender: FDA-Public Use
  Company Number: US-GLAXOSMITHKLINE-A0606667A

PATIENT

DRUGS (1)
  1. BEXXAR [Suspect]
     Route: 042
     Dates: start: 20060101, end: 20060101

REACTIONS (1)
  - RADIATION EXPOSURE [None]
